FAERS Safety Report 7495263-2 (Version None)
Quarter: 2011Q2

REPORT INFORMATION
  Report Type: 
  Country: None (occurrence: None)
  Receive Date: 20110522
  Receipt Date: 20110512
  Transmission Date: 20111010
  Serious: Yes (Other)
  Sender: FDA-Public Use
  Company Number: DE-ALLERGAN-1106700US

PATIENT
  Age: 2 Month

DRUGS (1)
  1. BRIMONIDINE TARTRATE [Suspect]
     Indication: GLAUCOMA
     Dosage: 2 GTT, SINGLE
     Route: 047

REACTIONS (4)
  - MOANING [None]
  - CHEYNE-STOKES RESPIRATION [None]
  - SOMNOLENCE [None]
  - IRRITABILITY [None]
